FAERS Safety Report 6273109-8 (Version None)
Quarter: 2009Q3

REPORT INFORMATION
  Report Type: 
  Country: None (occurrence: None)
  Receive Date: 20090715
  Receipt Date: 20090715
  Transmission Date: 20100115
  Serious: Yes (Hospitalization)
  Sender: FDA-Public Use
  Company Number: None

PATIENT
  Sex: Male
  Weight: 70.7611 kg

DRUGS (10)
  1. IXABEPILONE [Suspect]
     Indication: GALLBLADDER CANCER METASTATIC
     Dosage: 54 MG, DAY 1 OF EACH CYCLE
  2. SUNITINIB [Suspect]
     Dosage: 37.5 MG DAILY
  3. OXYCODONE [Concomitant]
  4. FLOMAX [Concomitant]
  5. ALLOPURINOL [Concomitant]
  6. SIMVASTATIN [Concomitant]
  7. MULTI-VITAMIN [Concomitant]
  8. VIT B12 [Concomitant]
  9. VIT C [Concomitant]
  10. ASLAGEN [Concomitant]

REACTIONS (3)
  - BLOOD CULTURE POSITIVE [None]
  - NAUSEA [None]
  - PYREXIA [None]
